FAERS Safety Report 7228924-0 (Version None)
Quarter: 2011Q1

REPORT INFORMATION
  Report Type: 
  Country: None (occurrence: None)
  Receive Date: 20110117
  Receipt Date: 20110106
  Transmission Date: 20110831
  Serious: Yes (Hospitalization)
  Sender: FDA-Public Use
  Company Number: FR-SANOFI-AVENTIS-2011SA000951

PATIENT
  Age: 62 Year
  Sex: Male

DRUGS (7)
  1. ESOMEPRAZOLE [Concomitant]
     Route: 048
  2. AMLODIPINE [Concomitant]
  3. CORTANCYL [Concomitant]
  4. CELL CEPT [Concomitant]
     Indication: WEGENER'S GRANULOMATOSIS
     Route: 048
     Dates: start: 20100601, end: 20100801
  5. LEVOTHYROX [Concomitant]
     Route: 048
  6. LASIX [Suspect]
     Dates: start: 20100822
  7. BACTRIM [Suspect]
     Dates: start: 20100812, end: 20100827

REACTIONS (1)
  - RENAL FAILURE ACUTE [None]
